FAERS Safety Report 13909099 (Version 1)
Quarter: 2017Q3

REPORT INFORMATION
  Report Type: Spontaneous
  Country: US (occurrence: US)
  Receive Date: 20170828
  Receipt Date: 20170828
  Transmission Date: 20171127
  Serious: Yes (Hospitalization, Other)
  Sender: FDA-Public Use
  Company Number: US-TORRENT-00003295

PATIENT
  Age: 34 Year
  Sex: Female

DRUGS (3)
  1. RISPERIDONE. [Suspect]
     Active Substance: RISPERIDONE
  2. CLOZAPINE. [Suspect]
     Active Substance: CLOZAPINE
  3. LITHIUM. [Suspect]
     Active Substance: LITHIUM

REACTIONS (6)
  - Catatonia [Unknown]
  - Neuroleptic malignant syndrome [Unknown]
  - Acute kidney injury [Unknown]
  - Exposure during pregnancy [Unknown]
  - Rhabdomyolysis [Unknown]
  - Delirium [Unknown]
